FAERS Safety Report 5971019-4 (Version None)
Quarter: 2008Q4

REPORT INFORMATION
  Report Type: 
  Country: None (occurrence: None)
  Receive Date: 20081128
  Receipt Date: 20081119
  Transmission Date: 20090506
  Serious: Yes (Other)
  Sender: FDA-Public Use
  Company Number: DE-RANBAXY-2008RR-19412

PATIENT
  Age: 60 Year
  Sex: Male

DRUGS (2)
  1. MIDAZOLAM HCL [Suspect]
     Indication: ANALGESIA
     Dosage: 5 MG, UNK
     Route: 013
  2. MEPERIDINE HCL [Suspect]
     Indication: ANALGESIA
     Dosage: 50 MG, UNK
     Route: 013

REACTIONS (2)
  - BURNING SENSATION [None]
  - PAIN [None]
